FAERS Safety Report 9737448 (Version 2)
Quarter: 2014Q1

REPORT INFORMATION
  Report Type: Report from Study
  Country: DE (occurrence: DE)
  Receive Date: 20131206
  Receipt Date: 20140122
  Transmission Date: 20141002
  Serious: Yes (Other)
  Sender: FDA-Public Use
  Company Number: DE-ABBVIE-13P-062-1177043-00

PATIENT
  Age: 42 Year
  Sex: Female

DRUGS (2)
  1. HUMIRA [Suspect]
     Indication: RHEUMATOID ARTHRITIS
     Route: 058
     Dates: start: 20080922, end: 20131011
  2. HUMIRA [Suspect]
     Route: 058
     Dates: start: 20131025

REACTIONS (2)
  - Meniscal degeneration [Unknown]
  - Respiratory tract infection [Recovered/Resolved]
